FAERS Safety Report 9736295 (Version 2)
Quarter: 2013Q4

REPORT INFORMATION
  Report Type: Report from Study
  Country: FR (occurrence: FR)
  Receive Date: 20131206
  Receipt Date: 20131206
  Transmission Date: 20140711
  Serious: Yes (Death, Other)
  Sender: FDA-Public Use
  Company Number: FR-ROCHE-1305140

PATIENT
  Age: 50 Year
  Sex: Female

DRUGS (1)
  1. ZELBORAF [Suspect]
     Indication: SKIN CANCER
     Dosage: FOUR DF
     Route: 065
     Dates: start: 20130423, end: 20130701

REACTIONS (3)
  - Disease progression [Fatal]
  - Thermal burn [Unknown]
  - Diarrhoea [Unknown]
